FAERS Safety Report 24849167 (Version 1)
Quarter: 2025Q1

REPORT INFORMATION
  Report Type: Spontaneous
  Country: US (occurrence: US)
  Receive Date: 20250116
  Receipt Date: 20250116
  Transmission Date: 20250409
  Serious: Yes (Hospitalization)
  Sender: MYLAN
  Company Number: US-MYLANLABS-2025M1003148

PATIENT
  Age: 57 Year
  Sex: Female

DRUGS (4)
  1. VERAPAMIL [Suspect]
     Active Substance: VERAPAMIL HYDROCHLORIDE
     Indication: Hypertrophic cardiomyopathy
     Dosage: 240 MILLIGRAM, BID
     Route: 065
  2. VERAPAMIL [Suspect]
     Active Substance: VERAPAMIL HYDROCHLORIDE
     Indication: Hypertension
  3. MAVACAMTEN [Interacting]
     Active Substance: MAVACAMTEN
     Indication: Hypertrophic cardiomyopathy
     Dosage: 5 MILLIGRAM, QD
     Route: 065
  4. DISOPYRAMIDE [Interacting]
     Active Substance: DISOPYRAMIDE
     Indication: Hypertrophic cardiomyopathy
     Dosage: 100 MILLIGRAM, BID, RECEIVED IMMEDIATE RELEASE
     Route: 065

REACTIONS (1)
  - Drug ineffective [Unknown]
